FAERS Safety Report 20507192 (Version 1)
Quarter: 2022Q1

REPORT INFORMATION
  Report Type: Spontaneous
  Country: CA (occurrence: None)
  Receive Date: 20220222
  Receipt Date: 20220222
  Transmission Date: 20220424
  Serious: Yes (Disabling)
  Sender: FDA-Public Use
  Company Number: None

PATIENT
  Age: 55 Year
  Sex: Male
  Weight: 96.75 kg

DRUGS (1)
  1. FIRMAGON [Suspect]
     Active Substance: DEGARELIX ACETATE
     Indication: Prostate cancer
     Dates: start: 20201001, end: 20201120

REACTIONS (12)
  - Weight increased [None]
  - Hyperhidrosis [None]
  - Cold sweat [None]
  - Gastrointestinal disorder [None]
  - Muscle rupture [None]
  - Brain injury [None]
  - Cognitive disorder [None]
  - Balance disorder [None]
  - Amnesia [None]
  - Dizziness [None]
  - Acne [None]
  - Libido disorder [None]

NARRATIVE: CASE EVENT DATE: 20201101
